FAERS Safety Report 24971323 (Version 1)
Quarter: 2025Q1

REPORT INFORMATION
  Report Type: Spontaneous
  Country: US (occurrence: None)
  Receive Date: 20250213
  Receipt Date: 20250213
  Transmission Date: 20250409
  Serious: Yes (unspecified)
  Sender: FDA-CTU
  Company Number: None

PATIENT
  Age: 79 Year
  Sex: Female
  Weight: 67.5 kg

DRUGS (16)
  1. HIZENTRA [Suspect]
     Active Substance: HUMAN IMMUNOGLOBULIN G
     Indication: Immunodeficiency common variable
     Dosage: OTHER FREQUENCY : WEEKLY;?
     Route: 058
     Dates: start: 20180531
  2. Eliquis PO [Concomitant]
     Dates: start: 20250130
  3. OXYCODONE [Concomitant]
     Active Substance: OXYCODONE
  4. ASPIRIN [Concomitant]
     Active Substance: ASPIRIN
  5. BUDESONIDE [Concomitant]
     Active Substance: BUDESONIDE
  6. Effexor XR 37.5mg [Concomitant]
  7. ALDACTONE [Concomitant]
     Active Substance: SPIRONOLACTONE
  8. Requip 3mg [Concomitant]
  9. SINGULAIR [Concomitant]
     Active Substance: MONTELUKAST SODIUM
  10. COZAAR [Concomitant]
     Active Substance: LOSARTAN POTASSIUM
  11. XOPENEX HFA [Concomitant]
     Active Substance: LEVALBUTEROL TARTRATE
  12. Pepcid 40mg [Concomitant]
  13. Coreg 3.125mg [Concomitant]
  14. Brovana 15mcg/2mL [Concomitant]
  15. Azelastine 137mcg/spray [Concomitant]
  16. Flomax 0.4mg [Concomitant]

REACTIONS (1)
  - Pulmonary thrombosis [None]
